FAERS Safety Report 4714026-1 (Version None)
Quarter: 2005Q3

REPORT INFORMATION
  Report Type: 
  Country: None (occurrence: None)
  Receive Date: 20050713
  Receipt Date: 20050627
  Transmission Date: 20060218
  Serious: Yes (Hospitalization, Disabling)
  Sender: FDA-Public Use
  Company Number: TRP_0161_2005

PATIENT
  Age: 51 Year
  Sex: Female
  Weight: 102.0593 kg

DRUGS (2)
  1. RIBASPHERE [Suspect]
     Indication: HEPATITIS C
     Dosage: DF PO
     Route: 048
     Dates: start: 20050225, end: 20050520
  2. PEG-INTRON [Suspect]
     Indication: HEPATITIS C
     Dosage: DF SC
     Route: 058
     Dates: start: 20050225, end: 20050520

REACTIONS (4)
  - CHEST PAIN [None]
  - DEPRESSION [None]
  - DYSPNOEA [None]
  - PALPITATIONS [None]
